FAERS Safety Report 15907052 (Version 2)
Quarter: 2019Q1

REPORT INFORMATION
  Report Type: Spontaneous
  Country: CH (occurrence: CH)
  Receive Date: 20190204
  Receipt Date: 20190211
  Transmission Date: 20190417
  Serious: Yes (Other)
  Sender: FDA-Public Use
  Company Number: CH-009507513-1902CHE000313

PATIENT
  Age: 68 Year
  Sex: Male
  Weight: 61 kg

DRUGS (2)
  1. JANUVIA [Suspect]
     Active Substance: SITAGLIPTIN PHOSPHATE
     Dosage: 25 MG TABLETS, DAILY
     Route: 048
  2. DIAMICRON [Suspect]
     Active Substance: GLICLAZIDE
     Route: 048

REACTIONS (12)
  - Suicidal ideation [Recovering/Resolving]
  - Blood glucose increased [Unknown]
  - Swelling face [Unknown]
  - Memory impairment [Unknown]
  - Syncope [Unknown]
  - Hypoglycaemia [Unknown]
  - Abdominal pain [Unknown]
  - Inappropriate schedule of product administration [Unknown]
  - Sleep disorder [Recovering/Resolving]
  - Listless [Recovering/Resolving]
  - Mood altered [Recovering/Resolving]
  - Depression [Recovering/Resolving]
